FAERS Safety Report 15000207 (Version 1)
Quarter: 2018Q2

REPORT INFORMATION
  Report Type: Spontaneous
  Country: US (occurrence: US)
  Receive Date: 20180521
  Receipt Date: 20180521
  Transmission Date: 20180711
  Serious: Yes (Disabling, Other)
  Sender: FDA-Public Use
  Company Number: None

PATIENT
  Age: 51 Year
  Sex: Female
  Weight: 78.02 kg

DRUGS (2)
  1. GLADOLINIUM CONTRAST DYE IN MRI [Suspect]
     Active Substance: GADOLINIUM
     Dosage: ?          OTHER DOSE:CONTRAST DYE IN MR;?
     Dates: start: 20180409
  2. GADOLINIUM CONTRAST DYE IN MRI [Suspect]
     Active Substance: GADOLINIUM
     Indication: BREAST CANCER
     Dosage: ?          OTHER DOSE:CONTRAST DYE IN MR;?
     Dates: start: 20180330

REACTIONS (8)
  - Myalgia [None]
  - Joint swelling [None]
  - Poisoning [None]
  - Gait disturbance [None]
  - Asthenia [None]
  - Arthralgia [None]
  - Joint stiffness [None]
  - Muscle tightness [None]
